FAERS Safety Report 13163339 (Version 1)
Quarter: 2017Q1

REPORT INFORMATION
  Report Type: Spontaneous
  Country: US (occurrence: US)
  Receive Date: 20170130
  Receipt Date: 20170130
  Transmission Date: 20170428
  Serious: Yes (Death)
  Sender: FDA-Public Use
  Company Number: US-PFIZER INC-2017026795

PATIENT
  Age: 70 Year
  Sex: Female

DRUGS (1)
  1. EPINEPHRINE. [Suspect]
     Active Substance: EPINEPHRINE
     Dosage: 30 ML OF 1:1000
     Route: 030

REACTIONS (3)
  - Death [Fatal]
  - Toxicity to various agents [Fatal]
  - Medication error [Fatal]

NARRATIVE: CASE EVENT DATE: 2015
